FAERS Safety Report 16104941 (Version 1)
Quarter: 2019Q1

REPORT INFORMATION
  Report Type: Spontaneous
  Country: CN (occurrence: CN)
  Receive Date: 20190322
  Receipt Date: 20190322
  Transmission Date: 20190418
  Serious: Yes (Other)
  Sender: FDA-Public Use
  Company Number: CN-ROCHE-2276640

PATIENT
  Age: 48 Year
  Sex: Male

DRUGS (9)
  1. CEFTIZOXIME [Concomitant]
     Active Substance: CEFTIZOXIME
  2. MYCAMINE [Concomitant]
     Active Substance: MICAFUNGIN SODIUM
  3. INTRAVENOUS IMMUNE GLOBULIN [Concomitant]
     Active Substance: HUMAN IMMUNOGLOBULIN G
     Route: 065
  4. TACROLIMUS. [Concomitant]
     Active Substance: TACROLIMUS
     Indication: IMMUNOSUPPRESSION
  5. ATG-FRESENIUS [Concomitant]
     Active Substance: LAPINE T-LYMPHOCYTE IMMUNE GLOBULIN
     Indication: IMMUNOSUPPRESSION
     Route: 065
  6. CELLCEPT [Suspect]
     Active Substance: MYCOPHENOLATE MOFETIL\MYCOPHENOLATE MOFETIL HYDROCHLORIDE
     Indication: IMMUNOSUPPRESSION
     Route: 065
  7. CYCLOSPORINE. [Concomitant]
     Active Substance: CYCLOSPORINE
     Indication: IMMUNOSUPPRESSION
  8. METHYLPREDNISOLONE. [Concomitant]
     Active Substance: METHYLPREDNISOLONE
     Route: 065
  9. PREDNISONE. [Concomitant]
     Active Substance: PREDNISONE
     Indication: IMMUNOSUPPRESSION

REACTIONS (12)
  - Delayed graft function [Unknown]
  - Cough [Unknown]
  - Bone marrow failure [Unknown]
  - Bacterial infection [Unknown]
  - Pneumonitis [Unknown]
  - Pericardial effusion [Unknown]
  - Procalcitonin increased [Unknown]
  - Infection [Unknown]
  - Pyrexia [Unknown]
  - Melaena [Unknown]
  - Dyspnoea [Unknown]
  - Gastrointestinal haemorrhage [Unknown]
